FAERS Safety Report 6085677-X (Version None)
Quarter: 2009Q1

REPORT INFORMATION
  Report Type: 
  Country: None (occurrence: None)
  Receive Date: 20090220
  Receipt Date: 20090204
  Transmission Date: 20090719
  Serious: Yes (Death, Hospitalization, Disabling)
  Sender: FDA-Public Use
  Company Number: FR-ROCHE-612870

PATIENT
  Sex: Male

DRUGS (8)
  1. CAPECITABINE [Suspect]
     Dosage: LAST DOSE PRIOR TO SAE: 21 FEB 2008 CUMULATIVE DOSE: 65000 MG
     Route: 048
     Dates: start: 20080118
  2. OXALIPLATIN [Suspect]
     Dosage: LAST DOSE PRIOR TO SAE: 15 FEB 2008 CUMULATIVE DOSE: 425 MG
     Route: 065
     Dates: start: 20080118
  3. DIGOXIN [Concomitant]
  4. ZESTRIL [Concomitant]
  5. LASIX [Concomitant]
  6. DIFFU-K [Concomitant]
  7. ARIXTRA [Concomitant]
  8. PREVISCAN [Concomitant]

REACTIONS (2)
  - DEATH [None]
  - PERITONITIS [None]
